FAERS Safety Report 9181858 (Version 1)
Quarter: 2013Q1

REPORT INFORMATION
  Report Type: Spontaneous
  Country: NL (occurrence: NL)
  Receive Date: 20130322
  Receipt Date: 20130322
  Transmission Date: 20140127
  Serious: Yes (Other)
  Sender: FDA-Public Use
  Company Number: NL-JNJFOC-20130307992

PATIENT
  Sex: Female

DRUGS (6)
  1. DOXORUBICIN HYDROCHLORIDE [Suspect]
     Indication: ENDOMETRIAL CANCER
     Route: 042
  2. DOXORUBICIN HYDROCHLORIDE [Suspect]
     Indication: BREAST CANCER METASTATIC
     Route: 042
  3. DOXORUBICIN HYDROCHLORIDE [Suspect]
     Indication: OVARIAN CANCER
     Route: 042
  4. TEMSIROLIMUS [Suspect]
     Indication: ENDOMETRIAL CANCER
     Route: 042
  5. TEMSIROLIMUS [Suspect]
     Indication: BREAST CANCER METASTATIC
     Route: 042
  6. TEMSIROLIMUS [Suspect]
     Indication: OVARIAN CANCER
     Route: 042

REACTIONS (9)
  - Thrombocytopenic purpura [Unknown]
  - Skin toxicity [Unknown]
  - Fatigue [Unknown]
  - Nausea [Unknown]
  - Mucosal inflammation [Unknown]
  - Rash [Unknown]
  - Palmar-plantar erythrodysaesthesia syndrome [Unknown]
  - Vomiting [Unknown]
  - Decreased appetite [Unknown]
